FAERS Safety Report 5807441-6 (Version None)
Quarter: 2008Q3

REPORT INFORMATION
  Report Type: 
  Country: None (occurrence: None)
  Receive Date: 20080711
  Receipt Date: 20080708
  Transmission Date: 20090109
  Serious: Yes (Hospitalization)
  Sender: FDA-Public Use
  Company Number: DE-MERCK-0805DEU00032

PATIENT
  Sex: Female
  Weight: 61 kg

DRUGS (9)
  1. PRIMAXIN [Suspect]
     Indication: BRONCHIECTASIS
     Route: 042
     Dates: start: 20080415, end: 20080428
  2. PRIMAXIN [Suspect]
     Indication: PSEUDOMONAS INFECTION
     Route: 042
     Dates: start: 20080415, end: 20080428
  3. METOCLOPRAMIDE [Concomitant]
     Indication: VOMITING
     Route: 048
     Dates: start: 20080416, end: 20080428
  4. COZAAR [Concomitant]
     Indication: HYPERTENSION
     Route: 048
     Dates: start: 20080415
  5. ACETYLCYSTEINE [Concomitant]
     Route: 048
     Dates: start: 20080415
  6. ZITHROMAX [Concomitant]
     Route: 065
     Dates: start: 20080416
  7. FOSTER [Concomitant]
     Dates: start: 20080416
  8. SPIRIVA [Concomitant]
     Dates: start: 20080415
  9. GENTAMYCIN SULFATE [Concomitant]

REACTIONS (7)
  - CONVULSION [None]
  - DRUG INTERACTION [None]
  - HEADACHE [None]
  - PARTIAL SEIZURES [None]
  - PETIT MAL EPILEPSY [None]
  - PYREXIA [None]
  - TRAUMATIC BRAIN INJURY [None]
